FAERS Safety Report 8304986-4 (Version None)
Quarter: 2012Q2

REPORT INFORMATION
  Report Type: 
  Country: None (occurrence: None)
  Receive Date: 20120423
  Receipt Date: 20120417
  Transmission Date: 20120825
  Serious: No
  Sender: FDA-Public Use
  Company Number: US-BAYER-2012-038924

PATIENT
  Age: 72 Year
  Sex: Female
  Weight: 39 kg

DRUGS (4)
  1. LEVOTHYROXINE SODIUM [Concomitant]
  2. LISINOPRIL [Concomitant]
  3. ALEVE (CAPLET) [Suspect]
     Indication: ARTHRITIS
     Dosage: 1 TABLET ONCE DAILY - 250 COUNT
     Route: 048
     Dates: start: 20120403
  4. IRON [Concomitant]

REACTIONS (1)
  - DIARRHOEA [None]
